FAERS Safety Report 20551999 (Version 2)
Quarter: 2022Q1

REPORT INFORMATION
  Report Type: Spontaneous
  Country: US (occurrence: US)
  Receive Date: 20220304
  Receipt Date: 20220318
  Transmission Date: 20220423
  Serious: Yes (Other)
  Sender: FDA-Public Use
  Company Number: US-BAYER-2022A028590

PATIENT
  Age: 33 Year
  Sex: Male

DRUGS (11)
  1. KOGENATE FS [Suspect]
     Active Substance: ANTIHEMOPHILIC FACTOR, HUMAN RECOMBINANT
     Dosage: 1072 IU, BID
     Route: 042
  2. KOGENATE FS [Suspect]
     Active Substance: ANTIHEMOPHILIC FACTOR, HUMAN RECOMBINANT
     Dosage: 567 IU, BID
     Route: 042
  3. ACETAMINOPHEN\OXYCODONE HYDROCHLORIDE [Concomitant]
     Active Substance: ACETAMINOPHEN\OXYCODONE HYDROCHLORIDE
     Dosage: 1 DF, QID PRN
  4. COVID-19 VACCINE MRNA (MRNA 1273) [Concomitant]
  5. COLACE [Concomitant]
     Active Substance: DOCUSATE SODIUM
     Dosage: 100 MG, BID
     Route: 048
  6. HUMIRA [Concomitant]
     Active Substance: ADALIMUMAB
     Dosage: 40 MG/0.8 ML, ONCE
     Route: 058
  7. IRON DEXTRAN [Concomitant]
     Active Substance: IRON DEXTRAN
     Dosage: 1000 MG
     Route: 042
  8. SODIUM CHLORIDE [Concomitant]
     Active Substance: SODIUM CHLORIDE
     Dosage: 250 ML
     Route: 042
  9. TRANEXAMIC ACID [Concomitant]
     Active Substance: TRANEXAMIC ACID
     Dosage: 1300 MG, TID
     Route: 048
  10. TRANEXAMIC ACID [Concomitant]
     Active Substance: TRANEXAMIC ACID
  11. CALCIUM CARBONATE [Concomitant]
     Active Substance: CALCIUM CARBONATE
     Dosage: 500 MG, BID PRN
     Route: 048

REACTIONS (1)
  - Hip arthroplasty [Recovered/Resolved]

NARRATIVE: CASE EVENT DATE: 20220210
